FAERS Safety Report 25725624 (Version 2)
Quarter: 2025Q3

REPORT INFORMATION
  Report Type: Spontaneous
  Country: JP (occurrence: JP)
  Receive Date: 20250826
  Receipt Date: 20250915
  Transmission Date: 20251020
  Serious: Yes (Other)
  Sender: OTSUKA
  Company Number: JP-MMM-Otsuka-QRXBSVN5

PATIENT
  Age: 10 Decade

DRUGS (3)
  1. REXULTI [Suspect]
     Active Substance: BREXPIPRAZOLE
     Indication: Dementia Alzheimer^s type
     Route: 065
  2. REXULTI [Suspect]
     Active Substance: BREXPIPRAZOLE
     Indication: Agitation
  3. LEXAPRO [Concomitant]
     Active Substance: ESCITALOPRAM OXALATE
     Indication: Product used for unknown indication
     Route: 065

REACTIONS (1)
  - Delirium [Unknown]
